FAERS Safety Report 8767001 (Version 1)
Quarter: 2012Q4

REPORT INFORMATION
  Report Type: 
  Country: US (occurrence: US)
  Receive Date: 20120904
  Receipt Date: 20120904
  Transmission Date: 20130627
  Serious: No
  Sender: FDA-Public Use
  Company Number: US-JNJFOC-20120814839

PATIENT
  Sex: Female

DRUGS (2)
  1. INVEGA SUSTENNA [Suspect]
     Indication: SCHIZOAFFECTIVE DISORDER
     Route: 030
  2. ANTIDEPRESSANT [Concomitant]
     Indication: DEPRESSION
     Route: 065

REACTIONS (4)
  - Renal impairment [Unknown]
  - Blood prolactin increased [Unknown]
  - Haematocrit increased [Unknown]
  - Blood glucose increased [Unknown]
